APPROVED DRUG PRODUCT: VENOFER
Active Ingredient: IRON SUCROSE
Strength: EQ 200MG IRON/10ML (EQ 20MG IRON/ML)
Dosage Form/Route: INJECTABLE;INTRAVENOUS
Application: N021135 | Product #004 | TE Code: AB
Applicant: AMERICAN REGENT INC
Approved: Feb 9, 2007 | RLD: Yes | RS: No | Type: RX